FAERS Safety Report 11219932 (Version 1)
Quarter: 2015Q2

REPORT INFORMATION
  Report Type: Spontaneous
  Country: TN (occurrence: TN)
  Receive Date: 20150625
  Receipt Date: 20150625
  Transmission Date: 20150821
  Serious: Yes (Hospitalization)
  Sender: FDA-Public Use
  Company Number: TN-AMEDRA PHARMACEUTICALS LLC-2015AMD00100

PATIENT
  Age: 29 Year
  Sex: Female

DRUGS (8)
  1. TENOFOVIR [Concomitant]
     Active Substance: TENOFOVIR
     Indication: HIV INFECTION
  2. LAMIVUDINE. [Concomitant]
     Active Substance: LAMIVUDINE
     Indication: HIV INFECTION
  3. SULFADIAZINE. [Suspect]
     Active Substance: SULFADIAZINE
     Indication: CEREBRAL TOXOPLASMOSIS
     Dosage: 4 G, 1X/DAY
  4. FOLINIC ACID [Suspect]
     Active Substance: LEUCOVORIN
     Indication: CEREBRAL TOXOPLASMOSIS
     Dosage: 25 MG, 1X/DAY
  5. RITONAVIR. [Concomitant]
     Active Substance: RITONAVIR
     Indication: HIV INFECTION
  6. GANCICLOVIR. [Concomitant]
     Active Substance: GANCICLOVIR
     Indication: CHORIORETINITIS
     Dosage: 5 MG/KG, 2X/DAY
  7. LOPINAVIR [Concomitant]
     Active Substance: LOPINAVIR
     Indication: HIV INFECTION
  8. PYRIMETHAMINE [Suspect]
     Active Substance: PYRIMETHAMINE
     Indication: CEREBRAL TOXOPLASMOSIS
     Dosage: 50 MG, 1X/DAY

REACTIONS (8)
  - Seizure [Recovering/Resolving]
  - Cerebellar syndrome [Recovering/Resolving]
  - Headache [Recovering/Resolving]
  - Immune reconstitution inflammatory syndrome [Recovering/Resolving]
  - Ataxia [Recovering/Resolving]
  - Hemiparesis [Recovering/Resolving]
  - Vomiting [Recovering/Resolving]
  - Central nervous system lesion [Recovering/Resolving]
